FAERS Safety Report 12505197 (Version 1)
Quarter: 2016Q2

REPORT INFORMATION
  Report Type: Spontaneous
  Country: GB (occurrence: GB)
  Receive Date: 20160628
  Receipt Date: 20160628
  Transmission Date: 20160815
  Serious: Yes (Other)
  Sender: FDA-Public Use
  Company Number: GB-GLAXOSMITHKLINE-GB2016GSK091644

PATIENT
  Age: 83 Year
  Sex: Female

DRUGS (1)
  1. ZINNAT [Suspect]
     Active Substance: CEFUROXIME AXETIL
     Indication: KIDNEY INFECTION
     Dosage: UNK

REACTIONS (3)
  - Choking [Unknown]
  - Nervousness [Unknown]
  - Dyspnoea [Unknown]
